FAERS Safety Report 9156595 (Version 1)
Quarter: 2013Q1

REPORT INFORMATION
  Report Type: Spontaneous
  Country: US (occurrence: None)
  Receive Date: 20130208
  Receipt Date: 20130208
  Transmission Date: 20140127
  Serious: Yes (Other)
  Sender: FDA-Public Use
  Company Number: ACO_34062_2013

PATIENT
  Age: 52 Year
  Sex: Female

DRUGS (1)
  1. AMPYRA (DALFAMPRIDINE) TABLET, 10MG [Suspect]
     Indication: PRODUCT USED FOR UNKNOWN INDICATION
     Dates: start: 20120508

REACTIONS (8)
  - Loss of consciousness [None]
  - Speech disorder [None]
  - Hypoaesthesia [None]
  - Hypoaesthesia [None]
  - Urine odour abnormal [None]
  - Tremor [None]
  - Nausea [None]
  - Medication error [None]
